FAERS Safety Report 4476933-7 (Version None)
Quarter: 2004Q4

REPORT INFORMATION
  Report Type: 
  Country: None (occurrence: None)
  Receive Date: 20041018
  Receipt Date: 20041018
  Transmission Date: 20050328
  Serious: Yes (Life-Threatening)
  Sender: FDA-Public Use
  Company Number: None

PATIENT
  Sex: Male
  Weight: 62.1428 kg

DRUGS (2)
  1. CRESTOR [Suspect]
     Indication: CORONARY ARTERY DISEASE
  2. CRESTOR [Suspect]
     Indication: HYPERLIPIDAEMIA

REACTIONS (2)
  - HYPOAESTHESIA [None]
  - MYALGIA [None]
